FAERS Safety Report 5236115-8 (Version None)
Quarter: 2007Q1

REPORT INFORMATION
  Report Type: 
  Country: None (occurrence: None)
  Receive Date: 20061208
  Receipt Date: 20060425
  Transmission Date: 20070707
  Serious: Yes (Other)
  Sender: FDA-Public Use
  Company Number: 2006UW07442

PATIENT
  Age: 64 Year
  Sex: Male
  Weight: 65.77 kg

DRUGS (2)
  1. CRESTOR [Suspect]
     Indication: BLOOD CHOLESTEROL INCREASED
     Dosage: 5 MG DAILY PO
     Route: 048
     Dates: start: 20060409
  2. CIALIS [Concomitant]

REACTIONS (2)
  - FATIGUE [None]
  - URINE OUTPUT INCREASED [None]
